FAERS Safety Report 14254417 (Version 2)
Quarter: 2018Q1

REPORT INFORMATION
  Report Type: Spontaneous
  Country: US (occurrence: US)
  Receive Date: 20171206
  Receipt Date: 20180304
  Transmission Date: 20180508
  Serious: No
  Sender: FDA-Public Use
  Company Number: US-009507513-1711USA006135

PATIENT
  Age: 36 Year
  Sex: Male

DRUGS (4)
  1. AMANTADINE. [Concomitant]
     Active Substance: AMANTADINE HYDROCHLORIDE
     Indication: HIV-ASSOCIATED NEUROCOGNITIVE DISORDER
  2. SINEMET [Suspect]
     Active Substance: CARBIDOPA\LEVODOPA
     Indication: PARKINSONISM
     Dosage: 87.5-350, TID (1050 MG OF LEVODOPA DAILY)
     Route: 048
  3. AMANTADINE. [Concomitant]
     Active Substance: AMANTADINE HYDROCHLORIDE
     Indication: PARKINSONISM
     Dosage: 100 MG, TWICE A DAY
  4. SINEMET [Suspect]
     Active Substance: CARBIDOPA\LEVODOPA
     Indication: HIV-ASSOCIATED NEUROCOGNITIVE DISORDER
     Dosage: 12.5-50MG, TID WITH GRADUAL TITRATION

REACTIONS (1)
  - Off label use [Unknown]
